FAERS Safety Report 11196165 (Version 1)
Quarter: 2015Q2

REPORT INFORMATION
  Report Type: Spontaneous
  Country: IT (occurrence: IT)
  Receive Date: 20150617
  Receipt Date: 20150617
  Transmission Date: 20150821
  Serious: Yes (Death, Other)
  Sender: FDA-Public Use
  Company Number: IT-CELGENE-ITA-2014115792

PATIENT

DRUGS (2)
  1. VIDAZA [Suspect]
     Active Substance: AZACITIDINE
     Indication: ACUTE MYELOID LEUKAEMIA
  2. VIDAZA [Suspect]
     Active Substance: AZACITIDINE
     Indication: MYELODYSPLASTIC SYNDROME
     Route: 065

REACTIONS (11)
  - Upper respiratory tract infection [Fatal]
  - Sepsis [Fatal]
  - Neutropenia [Unknown]
  - Lung disorder [Unknown]
  - Disease progression [Unknown]
  - Subcutaneous abscess [Fatal]
  - Performance status decreased [Unknown]
  - Genitourinary tract infection [Fatal]
  - Pneumonia [Fatal]
  - Gastrointestinal infection [Fatal]
  - Cardiac disorder [Unknown]
